FAERS Safety Report 17811012 (Version 1)
Quarter: 2020Q2

REPORT INFORMATION
  Report Type: Spontaneous
  Country: US (occurrence: US)
  Receive Date: 20200520
  Receipt Date: 20200520
  Transmission Date: 20200714
  Serious: Yes (Other)
  Sender: FDA-Public Use
  Company Number: None

PATIENT
  Age: 35 Year
  Sex: Male
  Weight: 272.7 kg

DRUGS (22)
  1. ASPIRIN 81 MG PO DAILY [Concomitant]
     Dates: start: 20200517
  2. DOXYCYCLINE 100 MG PO BID [Concomitant]
     Dates: start: 20200516, end: 20200518
  3. INSULIN GLARGINE [Concomitant]
     Active Substance: INSULIN GLARGINE
     Dates: start: 20200517, end: 20200519
  4. MONTELUKAST [Concomitant]
     Active Substance: MONTELUKAST SODIUM
     Dates: start: 20200518
  5. AMLODIPINE 10 MG DAILY [Concomitant]
     Dates: start: 20200519
  6. ENOXAPARIN 40 MG SQ BID [Concomitant]
     Dates: start: 20200516, end: 20200519
  7. FUROSEMIDE IV 20 MG X1 THEN 40 MG BID [Concomitant]
     Dates: start: 20200517, end: 20200519
  8. DIPHENHYDRAMINE 25 MG IV X 1 [Concomitant]
     Dates: start: 20200517, end: 20200517
  9. DOXYCYCLINE SUSPENSION 100 MG PO BID [Concomitant]
     Dates: start: 20200518
  10. HYDRALAZINE 10 MG IV Q4H PRN [Concomitant]
     Dates: start: 20200517, end: 20200519
  11. KETAMINE INFUSION [Concomitant]
     Active Substance: KETAMINE
     Dates: start: 20200519
  12. ONDANSETRON [Concomitant]
     Active Substance: ONDANSETRON
     Dates: start: 20200516
  13. ASCORBIC ACID 500 MG PO BID [Concomitant]
     Dates: start: 20200516
  14. DEXTROSE 5% IV, 100 ML/HR [Concomitant]
     Dates: start: 20200518, end: 20200518
  15. TOCILIZUMAB IV [Concomitant]
     Dates: start: 20200517, end: 20200517
  16. METHYLPREDNISOLONE IV [Concomitant]
     Active Substance: METHYLPREDNISOLONE
     Dates: start: 20200517
  17. FAMOTIDINE 20 MG BID [Concomitant]
     Dates: start: 20200518
  18. FENTANYL IV INFUSION [Concomitant]
     Dates: start: 20200518
  19. REGULAR INSULIN INFUSION [Concomitant]
     Dates: start: 20200517
  20. INSULIN LISPRO [Concomitant]
     Active Substance: INSULIN LISPRO
     Dates: start: 20200517, end: 20200519
  21. REMDESIVIR. [Suspect]
     Active Substance: REMDESIVIR
     Indication: COVID-19
     Route: 042
     Dates: start: 20200517
  22. CEFTRIAXONE 1G IV DAILY [Concomitant]
     Dates: start: 20200518

REACTIONS (3)
  - Respiratory failure [None]
  - Blood creatinine increased [None]
  - Renal impairment [None]

NARRATIVE: CASE EVENT DATE: 20200518
